FAERS Safety Report 12552568 (Version 8)
Quarter: 2017Q2

REPORT INFORMATION
  Report Type: Spontaneous
  Country: US (occurrence: US)
  Receive Date: 20160713
  Receipt Date: 20170523
  Transmission Date: 20170830
  Serious: Yes (Congenital Anomaly, Other)
  Sender: FDA-Public Use
  Company Number: PHEH2016US016959

PATIENT
  Sex: Male

DRUGS (2)
  1. ZOFRAN [Suspect]
     Active Substance: ONDANSETRON HYDROCHLORIDE
     Indication: FOETAL EXPOSURE DURING PREGNANCY
     Route: 064
  2. ONDANSETRON [Suspect]
     Active Substance: ONDANSETRON
     Indication: FOETAL EXPOSURE DURING PREGNANCY
     Dosage: MOTHER^S DOSE: 1 DF, Q12H
     Route: 064

REACTIONS (19)
  - Anhedonia [Unknown]
  - Cardiac murmur [Unknown]
  - Pyrexia [Unknown]
  - Hypertension [Unknown]
  - Anxiety [Unknown]
  - Dyspnoea [Unknown]
  - Chest pain [Unknown]
  - Congenital anomaly [Unknown]
  - Emotional distress [Unknown]
  - Fatigue [Unknown]
  - Pain [Unknown]
  - Adenoidal hypertrophy [Unknown]
  - Sleep apnoea syndrome [Unknown]
  - Foetal exposure during pregnancy [Unknown]
  - Injury [Unknown]
  - Diarrhoea [Unknown]
  - Heart disease congenital [Unknown]
  - Coarctation of the aorta [Unknown]
  - Premature baby [Unknown]
